FAERS Safety Report 5056540-8 (Version None)
Quarter: 2006Q3

REPORT INFORMATION
  Report Type: 
  Country: None (occurrence: None)
  Receive Date: 20060712
  Receipt Date: 20060707
  Transmission Date: 20061208
  Serious: Yes (Hospitalization, Other)
  Sender: FDA-Public Use
  Company Number: HQWYE411619MAY06

PATIENT
  Age: 35 Year
  Sex: Female
  Weight: 53.57 kg

DRUGS (11)
  1. RAPAMUNE [Suspect]
     Indication: PROPHYLAXIS AGAINST TRANSPLANT REJECTION
     Dosage: SEE IMAGE, ORAL
     Route: 048
     Dates: start: 20060425, end: 20060501
  2. RAPAMUNE [Suspect]
     Indication: PROPHYLAXIS AGAINST TRANSPLANT REJECTION
     Dosage: SEE IMAGE, ORAL
     Route: 048
     Dates: start: 20060501, end: 20060511
  3. CELLCEPT [Concomitant]
  4. PREDNISONE TAB [Concomitant]
  5. SEPTRA [Concomitant]
  6. PROTONIX [Concomitant]
  7. COZAAR [Concomitant]
  8. LOPRESSOR [Concomitant]
  9. ARANESP [Concomitant]
  10. LANTUS [Concomitant]
  11. NOVOLOG [Concomitant]

REACTIONS (3)
  - DRUG INEFFECTIVE [None]
  - KIDNEY TRANSPLANT REJECTION [None]
  - TUBULOINTERSTITIAL NEPHRITIS [None]
